FAERS Safety Report 7343255-6 (Version None)
Quarter: 2011Q1

REPORT INFORMATION
  Report Type: 
  Country: None (occurrence: None)
  Receive Date: 20110310
  Receipt Date: 20110303
  Transmission Date: 20110831
  Serious: Yes (Death)
  Sender: FDA-Public Use
  Company Number: US-US-EMD SERONO, INC.-233917J09USA

PATIENT
  Sex: Female

DRUGS (3)
  1. REBIF [Suspect]
     Indication: MULTIPLE SCLEROSIS
     Dates: start: 20091106, end: 20091201
  2. UNSPECIFIED MEDICATIONS [Concomitant]
  3. UNSPECIFIED MEDICATION FOR HEART [Concomitant]
     Indication: CARDIAC DISORDER

REACTIONS (1)
  - DEATH [None]
